FAERS Safety Report 6707183-9 (Version None)
Quarter: 2010Q2

REPORT INFORMATION
  Report Type: 
  Country: None (occurrence: None)
  Receive Date: 20100503
  Receipt Date: 20091015
  Transmission Date: 20101027
  Serious: No
  Sender: FDA-Public Use
  Company Number: US-ASTRAZENECA-2009SE20455

PATIENT
  Age: 65 Year
  Sex: Female
  Weight: 56.7 kg

DRUGS (11)
  1. NEXIUM [Suspect]
     Indication: OESOPHAGITIS
     Route: 048
  2. BACLOFEN [Concomitant]
  3. EVISTA [Concomitant]
  4. ONMARIS [Concomitant]
  5. CALCITONIN [Concomitant]
  6. FORTICAL [Concomitant]
  7. ASMANEX TWISTHALER [Concomitant]
  8. XOPINEX [Concomitant]
  9. VITAMIN D [Concomitant]
  10. OTC ALLERGY MED [Concomitant]
  11. ZANTAC [Concomitant]

REACTIONS (2)
  - DRUG INEFFECTIVE [None]
  - INCORRECT DOSE ADMINISTERED [None]
